FAERS Safety Report 9433123 (Version 3)
Quarter: 2013Q3

REPORT INFORMATION
  Report Type: Spontaneous
  Country: US (occurrence: US)
  Receive Date: 20130731
  Receipt Date: 20130905
  Transmission Date: 20140515
  Serious: Yes (Hospitalization)
  Sender: FDA-Public Use
  Company Number: US-GLAXOSMITHKLINE-A1001823A

PATIENT
  Age: 61 Year
  Sex: Female

DRUGS (1)
  1. AVANDIA [Suspect]
     Indication: DIABETES MELLITUS
     Dosage: 8MG PER DAY
     Route: 048
     Dates: start: 200212, end: 200604

REACTIONS (3)
  - Myocardial infarction [Unknown]
  - Post-traumatic stress disorder [Unknown]
  - Cardiac disorder [Unknown]
